FAERS Safety Report 20052152 (Version 2)
Quarter: 2021Q4

REPORT INFORMATION
  Report Type: Report from Study
  Country: JP (occurrence: JP)
  Receive Date: 20211110
  Receipt Date: 20211210
  Transmission Date: 20220303
  Serious: Yes (Hospitalization)
  Sender: FDA-Public Use
  Company Number: JP-NOVARTISPH-NVSJ2021JP018284

PATIENT
  Age: 43 Year
  Sex: Female
  Weight: 89 kg

DRUGS (21)
  1. ILARIS [Suspect]
     Active Substance: CANAKINUMAB
     Indication: Familial mediterranean fever
     Dosage: 150 MG
     Route: 058
     Dates: start: 20191028
  2. ILARIS [Suspect]
     Active Substance: CANAKINUMAB
     Dosage: 150 MG, 4W
     Route: 058
     Dates: start: 20191122, end: 20200117
  3. ILARIS [Suspect]
     Active Substance: CANAKINUMAB
     Dosage: 150 MG, 4W
     Route: 058
     Dates: start: 20200508, end: 20210827
  4. ILARIS [Suspect]
     Active Substance: CANAKINUMAB
     Dosage: 150 MG
     Route: 058
     Dates: start: 20211008
  5. COLCHICINE [Concomitant]
     Active Substance: COLCHICINE
     Indication: Familial mediterranean fever
     Dosage: 0.5 MG
     Route: 048
     Dates: start: 20180921, end: 20190110
  6. COLCHICINE [Concomitant]
     Active Substance: COLCHICINE
     Dosage: 1 MG
     Route: 048
     Dates: start: 20190111, end: 20190613
  7. COLCHICINE [Concomitant]
     Active Substance: COLCHICINE
     Dosage: 1.5 MG
     Route: 048
     Dates: start: 20190614, end: 20191219
  8. COLCHICINE [Concomitant]
     Active Substance: COLCHICINE
     Dosage: 1.5 MG
     Route: 048
     Dates: start: 20211121, end: 20211125
  9. MELOXICAM [Concomitant]
     Active Substance: MELOXICAM
     Indication: Familial mediterranean fever
     Dosage: UNK
     Route: 048
  10. BIO-THREE [Concomitant]
     Active Substance: HERBALS
     Indication: Prophylaxis
     Dosage: UNK
     Route: 048
  11. ACETAMINOPHEN [Concomitant]
     Active Substance: ACETAMINOPHEN
     Indication: Familial mediterranean fever
     Dosage: UNK
     Route: 048
  12. CELECOXIB [Concomitant]
     Active Substance: CELECOXIB
     Indication: Familial mediterranean fever
     Dosage: UNK
     Route: 048
  13. HERBALS [Concomitant]
     Active Substance: HERBALS
     Indication: Familial mediterranean fever
     Dosage: UNK
     Route: 048
  14. NEXIUM [Concomitant]
     Active Substance: ESOMEPRAZOLE MAGNESIUM
     Indication: Prophylaxis
     Dosage: UNK
     Route: 048
  15. VONOPRAZAN FUMARATE [Concomitant]
     Active Substance: VONOPRAZAN FUMARATE
     Indication: Prophylaxis
     Dosage: UNK
     Route: 048
  16. FELBINAC [Concomitant]
     Active Substance: FELBINAC
     Indication: Familial mediterranean fever
     Dosage: 40 MG
     Route: 062
  17. MYSER [Concomitant]
     Indication: Familial mediterranean fever
     Dosage: 5 G
     Route: 061
  18. LOCOID [Concomitant]
     Active Substance: HYDROCORTISONE BUTYRATE
     Indication: Familial mediterranean fever
     Dosage: 5 G
     Route: 061
  19. FELBINAC [Concomitant]
     Active Substance: FELBINAC
     Indication: Familial mediterranean fever
     Dosage: 40 G
     Route: 061
  20. DICLOFENAC [Concomitant]
     Active Substance: DICLOFENAC
     Indication: Familial mediterranean fever
     Dosage: UNK
     Route: 054
  21. SENNOSIDES [Concomitant]
     Active Substance: SENNOSIDES
     Indication: Familial mediterranean fever
     Dosage: UNK
     Route: 048

REACTIONS (2)
  - Cholecystitis [Unknown]
  - Abdominal pain upper [Recovered/Resolved]

NARRATIVE: CASE EVENT DATE: 20210706
